FAERS Safety Report 14217202 (Version 1)
Quarter: 2017Q4

REPORT INFORMATION
  Report Type: Spontaneous
  Country: JP (occurrence: JP)
  Receive Date: 20171122
  Receipt Date: 20171122
  Transmission Date: 20180321
  Serious: Yes (Other)
  Sender: FDA-Public Use
  Company Number: JP-CIPLA LTD.-2017JP17927

PATIENT

DRUGS (6)
  1. CISPLATIN. [Suspect]
     Active Substance: CISPLATIN
     Indication: GALLBLADDER CANCER
     Dosage: 25 MG/M2, (5 CYCLES) ON DAY 1 AND 8, 3 WEEKS PER CYCLE
     Route: 065
  2. CISPLATIN. [Suspect]
     Active Substance: CISPLATIN
     Indication: METASTASES TO SPINE
     Dosage: UNK, FIFTH CYCLE
     Route: 065
  3. CISPLATIN. [Suspect]
     Active Substance: CISPLATIN
     Indication: RETROPERITONEAL NEOPLASM METASTATIC
  4. GEMCITABINE [Suspect]
     Active Substance: GEMCITABINE\GEMCITABINE HYDROCHLORIDE
     Indication: RETROPERITONEAL NEOPLASM METASTATIC
  5. GEMCITABINE [Suspect]
     Active Substance: GEMCITABINE\GEMCITABINE HYDROCHLORIDE
     Indication: GALLBLADDER CANCER
     Dosage: 1000 MG/M2, (5 CYCLES) ON DAY 1 AND 8, 3 WEEKS PER CYCLE
     Route: 065
  6. GEMCITABINE [Suspect]
     Active Substance: GEMCITABINE\GEMCITABINE HYDROCHLORIDE
     Indication: METASTASES TO SPINE
     Dosage: UNK, FIFTH CYCLE
     Route: 065

REACTIONS (4)
  - Condition aggravated [Unknown]
  - Leukopenia [Unknown]
  - Thrombocytopenia [Unknown]
  - Metastases to spine [Unknown]
